FAERS Safety Report 7337642-X (Version None)
Quarter: 2011Q1

REPORT INFORMATION
  Report Type: 
  Country: None (occurrence: None)
  Receive Date: 20110228
  Receipt Date: 20110217
  Transmission Date: 20110831
  Serious: Yes (Hospitalization)
  Sender: FDA-Public Use
  Company Number: 022818

PATIENT
  Age: 35 Year
  Sex: Male

DRUGS (9)
  1. MYSTAN (MYSTAN) (NOT SPECIFIED) [Suspect]
     Dosage: (ORAL) ; (ORAL)
     Route: 048
  2. NELUROLEN [Concomitant]
  3. ALEVIATIN /00017401/ [Concomitant]
  4. PROLMON [Concomitant]
  5. PHENOBAL /00023201/ [Concomitant]
  6. GABAPENTINE [Concomitant]
  7. PAXIL [Concomitant]
  8. KEPPRA [Suspect]
     Dosage: (500 MG BID ORAL)
     Route: 048
     Dates: start: 20100101, end: 20100101
  9. VALERIN /00228502/ [Concomitant]

REACTIONS (1)
  - STATUS EPILEPTICUS [None]
